FAERS Safety Report 7510636-7 (Version None)
Quarter: 2011Q2

REPORT INFORMATION
  Report Type: 
  Country: None (occurrence: None)
  Receive Date: 20110530
  Receipt Date: 20110516
  Transmission Date: 20111010
  Serious: Yes (Other)
  Sender: FDA-Public Use
  Company Number: PHHY2011CA39216

PATIENT
  Sex: Female

DRUGS (1)
  1. ZOLEDRONIC ACID [Suspect]
     Indication: OSTEOPOROSIS
     Dosage: 5 MG, UNK
     Route: 042
     Dates: start: 20100728

REACTIONS (4)
  - RENAL FAILURE [None]
  - DIABETES MELLITUS [None]
  - CREATININE RENAL CLEARANCE DECREASED [None]
  - GLOMERULAR FILTRATION RATE DECREASED [None]
